FAERS Safety Report 23785565 (Version 2)
Quarter: 2024Q2

REPORT INFORMATION
  Report Type: Spontaneous
  Country: US (occurrence: US)
  Receive Date: 20240425
  Receipt Date: 20240520
  Transmission Date: 20240716
  Serious: No
  Sender: FDA-Public Use
  Company Number: US-BRISTOL-MYERS SQUIBB COMPANY-2024-059790

PATIENT
  Age: 59 Year
  Sex: Female
  Weight: 102.51 kg

DRUGS (2)
  1. ELIQUIS [Suspect]
     Active Substance: APIXABAN
     Indication: Pulmonary embolism
     Route: 048
  2. BUPROPION HYDROCHLORIDE [Concomitant]
     Active Substance: BUPROPION HYDROCHLORIDE
     Indication: Product used for unknown indication
     Route: 048

REACTIONS (6)
  - Tooth abscess [Unknown]
  - Dry mouth [Unknown]
  - Gingival discolouration [Unknown]
  - Visual impairment [Unknown]
  - Cough [Unknown]
  - Throat clearing [Unknown]

NARRATIVE: CASE EVENT DATE: 20240410
